FAERS Safety Report 20233224 (Version 3)
Quarter: 2022Q1

REPORT INFORMATION
  Report Type: Report from Study
  Country: EG (occurrence: EG)
  Receive Date: 20211227
  Receipt Date: 20220209
  Transmission Date: 20220423
  Serious: Yes (Other)
  Sender: FDA-Public Use
  Company Number: EG-NOVARTISPH-NVSC2021EG295750

PATIENT
  Sex: Female

DRUGS (11)
  1. COSENTYX [Suspect]
     Active Substance: SECUKINUMAB
     Indication: Ankylosing spondylitis
     Dosage: 150 MG, QMO
     Route: 058
     Dates: start: 2020
  2. COSENTYX [Suspect]
     Active Substance: SECUKINUMAB
     Dosage: 150 MG, QMO (SECOND DOSE)
     Route: 058
  3. COSENTYX [Suspect]
     Active Substance: SECUKINUMAB
     Dosage: 150 MG, QMO (THIRD DOSE)
     Route: 058
  4. METHOTREXATE [Concomitant]
     Active Substance: METHOTREXATE
     Indication: Ankylosing spondylitis
     Dosage: 1 DOSAGE FORM, QD (STARTED ON 7CM THEN 6CM)
     Route: 065
     Dates: start: 2019
  5. FOLIC ACID [Concomitant]
     Active Substance: FOLIC ACID
     Indication: Supplementation therapy
     Dosage: 1 DOSAGE FORM, QD
     Route: 065
     Dates: start: 2019
  6. MINERALS\VITAMINS [Concomitant]
     Active Substance: MINERALS\VITAMINS
     Indication: Ankylosing spondylitis
     Dosage: UNK
     Route: 065
     Dates: start: 2020
  7. CALCIUM [Concomitant]
     Active Substance: CALCIUM
     Indication: Product used for unknown indication
     Dosage: UNK
     Route: 065
     Dates: start: 2020
  8. GAPTIN [Concomitant]
     Indication: Intervertebral disc disorder
     Dosage: 1 DOSAGE FORM, QD (ONE TABLET DAILY FOR A MONTH)
     Route: 065
     Dates: start: 20211221
  9. CELEBREX [Concomitant]
     Active Substance: CELECOXIB
     Indication: Intervertebral disc disorder
     Dosage: 1 DOSAGE FORM, QD (ONE TABLET DAILY FOR A MONTH)
     Route: 065
     Dates: start: 20211221
  10. CELEBREX [Concomitant]
     Active Substance: CELECOXIB
     Dosage: UNK UNK, QMO
     Route: 065
  11. VITAMIN C [Concomitant]
     Active Substance: ASCORBIC ACID
     Indication: Prophylaxis
     Dosage: UNK UNK, QD
     Route: 065

REACTIONS (10)
  - Dysstasia [Recovering/Resolving]
  - C-reactive protein increased [Unknown]
  - Intervertebral disc disorder [Recovering/Resolving]
  - Arthritis [Unknown]
  - Back pain [Recovered/Resolved]
  - Drug ineffective [Recovered/Resolved]
  - Mobility decreased [Recovered/Resolved]
  - Sacral pain [Not Recovered/Not Resolved]
  - Off label use [Not Recovered/Not Resolved]
  - Drug ineffective [Not Recovered/Not Resolved]

NARRATIVE: CASE EVENT DATE: 20200101
